FAERS Safety Report 17073785 (Version 1)
Quarter: 2019Q4

REPORT INFORMATION
  Report Type: Spontaneous
  Country: CA (occurrence: CA)
  Receive Date: 20191126
  Receipt Date: 20191126
  Transmission Date: 20200122
  Serious: Yes (Other)
  Sender: FDA-Public Use
  Company Number: CA-AUROBINDO-AUR-APL-2019-052796

PATIENT
  Age: 86 Year
  Sex: Male

DRUGS (1)
  1. MIRTAZAPINE OD TABLETS 15 MG [Suspect]
     Active Substance: MIRTAZAPINE
     Indication: SLEEP DISORDER THERAPY
     Dosage: 7.5 MILLIGRAM
     Route: 065

REACTIONS (3)
  - Restlessness [Unknown]
  - Delirium [Unknown]
  - Agitation [Unknown]
